FAERS Safety Report 23837073 (Version 2)
Quarter: 2024Q2

REPORT INFORMATION
  Report Type: Spontaneous
  Country: ES (occurrence: ES)
  Receive Date: 20240509
  Receipt Date: 20240517
  Transmission Date: 20240716
  Serious: Yes (Life-Threatening, Hospitalization, Other)
  Sender: FDA-Public Use
  Company Number: None

PATIENT
  Age: 53 Year
  Sex: Female

DRUGS (6)
  1. ACETAMINOPHEN [Suspect]
     Active Substance: ACETAMINOPHEN
     Indication: Pain
     Dosage: 6 DOSAGE FORM (6 TABLETS)
     Route: 065
     Dates: start: 20240418
  2. CLOZAPINE [Suspect]
     Active Substance: CLOZAPINE
     Indication: Product used for unknown indication
     Dosage: UNK
     Route: 065
     Dates: start: 20240418
  3. LORAZEPAM [Suspect]
     Active Substance: LORAZEPAM
     Indication: Product used for unknown indication
     Dosage: UNK
     Route: 065
     Dates: start: 20240418
  4. AMOXICILLIN\CLAVULANATE POTASSIUM [Suspect]
     Active Substance: AMOXICILLIN\CLAVULANATE POTASSIUM
     Indication: Infection
     Dosage: UNK
     Route: 065
     Dates: start: 20240418
  5. METAMIZOLE MAGNESIUM [Suspect]
     Active Substance: METAMIZOLE MAGNESIUM
     Indication: Pain
     Dosage: 20 DOSAGE FORM, 20 CAPSULES
     Route: 065
     Dates: start: 20240418
  6. CLOTHIAPINE [Suspect]
     Active Substance: CLOTHIAPINE
     Indication: Product used for unknown indication
     Dosage: 3 DOSAGE FORM (3 TABLETS), 30 TAB
     Route: 065
     Dates: start: 20240418

REACTIONS (3)
  - Suicide attempt [Recovering/Resolving]
  - Depressed level of consciousness [Recovering/Resolving]
  - Suicidal ideation [Unknown]

NARRATIVE: CASE EVENT DATE: 20240418
